FAERS Safety Report 11722319 (Version 1)
Quarter: 2015Q4

REPORT INFORMATION
  Report Type: Spontaneous
  Country: US (occurrence: None)
  Receive Date: 20151110
  Receipt Date: 20151110
  Transmission Date: 20160304
  Serious: Yes (Life-Threatening, Other)
  Sender: FDA-Public Use
  Company Number: None

PATIENT
  Age: 66 Year
  Sex: Female
  Weight: 105.24 kg

DRUGS (11)
  1. AZITHROMYCIN [Suspect]
     Active Substance: AZITHROMYCIN ANHYDROUS
     Indication: HEADACHE
     Dosage: 250 MG - 6 TABLETS - 2 TAB DAY ONE;  1 TABLET DAILY - DAILY 1 TAB FOR 4 DAYS
     Route: 048
     Dates: start: 20151021, end: 20151022
  2. AZITHROMYCIN [Suspect]
     Active Substance: AZITHROMYCIN ANHYDROUS
     Indication: PULMONARY CONGESTION
     Dosage: 250 MG - 6 TABLETS - 2 TAB DAY ONE;  1 TABLET DAILY - DAILY 1 TAB FOR 4 DAYS
     Route: 048
     Dates: start: 20151021, end: 20151022
  3. PROAIR HFA [Suspect]
     Active Substance: ALBUTEROL SULFATE
     Indication: CHEST DISCOMFORT
     Dosage: 1-2 PUFFS AS NEEDED BY MOUTH
     Route: 048
  4. PROAIR HFA [Suspect]
     Active Substance: ALBUTEROL SULFATE
     Indication: MALAISE
     Dosage: 1-2 PUFFS AS NEEDED BY MOUTH
     Route: 048
  5. ENALAPRIL [Concomitant]
     Active Substance: ENALAPRIL
  6. PROAIR HFA [Suspect]
     Active Substance: ALBUTEROL SULFATE
     Indication: INFLUENZA
     Dosage: 1-2 PUFFS AS NEEDED BY MOUTH
     Route: 048
  7. PROAIR HFA [Suspect]
     Active Substance: ALBUTEROL SULFATE
     Indication: MUSCULAR WEAKNESS
     Dosage: 1-2 PUFFS AS NEEDED BY MOUTH
     Route: 048
  8. AMLODIPINE [Concomitant]
     Active Substance: AMLODIPINE BESYLATE
  9. AZITHROMYCIN [Suspect]
     Active Substance: AZITHROMYCIN ANHYDROUS
     Indication: UPPER RESPIRATORY TRACT INFECTION
     Dosage: 250 MG - 6 TABLETS - 2 TAB DAY ONE;  1 TABLET DAILY - DAILY 1 TAB FOR 4 DAYS
     Route: 048
     Dates: start: 20151021, end: 20151022
  10. PROAIR HFA [Suspect]
     Active Substance: ALBUTEROL SULFATE
     Indication: PULMONARY CONGESTION
     Dosage: 1-2 PUFFS AS NEEDED BY MOUTH
     Route: 048
  11. AZITHROMYCIN [Suspect]
     Active Substance: AZITHROMYCIN ANHYDROUS
     Indication: DYSPNOEA
     Dosage: 250 MG - 6 TABLETS - 2 TAB DAY ONE;  1 TABLET DAILY - DAILY 1 TAB FOR 4 DAYS
     Route: 048
     Dates: start: 20151021, end: 20151022

REACTIONS (5)
  - Vomiting [None]
  - Dyspnoea [None]
  - Cough [None]
  - Heart rate increased [None]
  - Blood pressure increased [None]

NARRATIVE: CASE EVENT DATE: 20151021
